FAERS Safety Report 4878546-1 (Version None)
Quarter: 2006Q1

REPORT INFORMATION
  Report Type: 
  Country: None (occurrence: None)
  Receive Date: 20060110
  Receipt Date: 20060110
  Transmission Date: 20060701
  Serious: No
  Sender: FDA-Public Use
  Company Number: None

PATIENT
  Age: 70 Year
  Sex: Male
  Weight: 89.8122 kg

DRUGS (1)
  1. CIALIS [Suspect]
     Indication: ERECTILE DYSFUNCTION
     Dosage: 1 TABLET, BY MOUTH
     Route: 048

REACTIONS (8)
  - ALCOHOL USE [None]
  - ASTHENIA [None]
  - DISCOMFORT [None]
  - HYPOTENSION [None]
  - MUSCLE TIGHTNESS [None]
  - MYALGIA [None]
  - PAIN IN EXTREMITY [None]
  - PYREXIA [None]
